FAERS Safety Report 15649449 (Version 3)
Quarter: 2022Q2

REPORT INFORMATION
  Report Type: Report from Study
  Country: US (occurrence: US)
  Receive Date: 20181122
  Receipt Date: 20220519
  Transmission Date: 20220721
  Serious: Yes (Death, Hospitalization, Other)
  Sender: FDA-Public Use
  Company Number: US-ACADIA PHARMACEUTICALS INC.-ACA-2018-010666

PATIENT
  Sex: Female

DRUGS (21)
  1. NUPLAZID [Suspect]
     Active Substance: PIMAVANSERIN TARTRATE
     Indication: Parkinson^s disease
     Dosage: 34 MILLIGRAM, QD
     Route: 048
     Dates: start: 20190917, end: 20220421
  2. NUPLAZID [Suspect]
     Active Substance: PIMAVANSERIN TARTRATE
     Indication: Hallucination
     Dosage: 10 MG, QD
     Route: 048
     Dates: start: 20180925
  3. ASPIRIN [Concomitant]
     Active Substance: ASPIRIN
     Dosage: 81 MILLIGRAM EC
  4. ATORVASTATIN [Concomitant]
     Active Substance: ATORVASTATIN
     Dosage: 10 MILLIGRAM
  5. CARBIDOPA\LEVODOPA [Concomitant]
     Active Substance: CARBIDOPA\LEVODOPA
     Dosage: 25-250 MG
  6. CARBIDOPA\LEVODOPA [Concomitant]
     Active Substance: CARBIDOPA\LEVODOPA
     Dosage: 50-200 MG ER TAB
  7. CYANOCOBALAMIN [Concomitant]
     Active Substance: CYANOCOBALAMIN
     Dosage: 1000 MICROGRAM
  8. ENTACAPONE [Concomitant]
     Active Substance: ENTACAPONE
     Dosage: 200 MILLIGRAM
  9. GLIPIZIDE [Concomitant]
     Active Substance: GLIPIZIDE
     Dosage: 5 MILLIGRAM
  10. LEVOTHYROXINE [Concomitant]
     Active Substance: LEVOTHYROXINE
     Dosage: 100 MICROGRAM
  11. TRIMETHOPRIM [Concomitant]
     Active Substance: TRIMETHOPRIM
     Dosage: 100 MILLIGRAM
  12. VITAMIN D [Concomitant]
     Active Substance: VITAMIN D NOS
  13. LISINOPRIL [Concomitant]
     Active Substance: LISINOPRIL
     Dosage: 2.5 MG
  14. METFORMIN [Concomitant]
     Active Substance: METFORMIN HYDROCHLORIDE
     Dosage: 500/5ML SOL
  15. METFORMIN [Concomitant]
     Active Substance: METFORMIN HYDROCHLORIDE
     Dosage: 1000 MILLIGRAM TABLET
  16. NORTRIPTYLINE [Concomitant]
     Active Substance: NORTRIPTYLINE
     Dosage: 50 MILLIGRAM
  17. CARBIDOPA [Concomitant]
     Active Substance: CARBIDOPA
     Dosage: 25 MILLIGRAM
  18. JANUVIA [Concomitant]
     Active Substance: SITAGLIPTIN PHOSPHATE
     Dosage: 100 MILLIGRAM
  19. LANTUS [Concomitant]
     Active Substance: INSULIN GLARGINE
     Dosage: 100/ML
  20. TIROSINT-SOL [Concomitant]
     Active Substance: LEVOTHYROXINE SODIUM
     Dosage: 100 MCG
  21. VITAMIN D3 [Concomitant]
     Active Substance: CHOLECALCIFEROL

REACTIONS (2)
  - Cardiac arrest [Fatal]
  - Blood glucose increased [Not Recovered/Not Resolved]

NARRATIVE: CASE EVENT DATE: 20180101
